FAERS Safety Report 9112574 (Version 5)
Quarter: 2014Q1

REPORT INFORMATION
  Report Type: Spontaneous
  Country: US (occurrence: US)
  Receive Date: 20130211
  Receipt Date: 20140123
  Transmission Date: 20141002
  Serious: Yes (Life-Threatening)
  Sender: FDA-Public Use
  Company Number: US-ROCHE-GNE283095

PATIENT
  Age: 39 Year
  Sex: Female
  Weight: 93.52 kg

DRUGS (15)
  1. XOLAIR [Suspect]
     Indication: ASTHMA
     Dosage: DATE OF LAST EXPOSURE PRIOR TO SAE 08/MAR/2009
     Route: 058
     Dates: start: 20071214
  2. TYLENOL WITH CODEINE [Concomitant]
     Indication: PRODUCT USED FOR UNKNOWN INDICATION
     Dosage: UNK
     Route: 048
  3. PROVENTIL [Concomitant]
     Indication: ASTHMA
     Dosage: INHALER
     Route: 065
     Dates: start: 20080411
  4. ALBUTEROL NEBULIZER [Concomitant]
     Indication: ASTHMA
     Dosage: UNK
     Route: 065
  5. NASONEX [Concomitant]
     Indication: HYPERSENSITIVITY
     Dosage: 50 MCG, UNK
     Route: 045
  6. NASONEX [Concomitant]
     Dosage: 2 PUFFS PER NOSTRIL
     Route: 045
  7. ASTELIN [Concomitant]
     Indication: HYPERSENSITIVITY
     Dosage: 137 MCG, UNK
     Route: 045
  8. ASTELIN [Concomitant]
     Dosage: 2 PUFFS PER NOSTRIL
     Route: 045
  9. ADVAIR [Concomitant]
     Indication: ASTHMA
     Dosage: 500/50 MCG
     Route: 065
     Dates: start: 20071019, end: 20081121
  10. ADVAIR [Concomitant]
     Dosage: 250/50 MCG
     Route: 065
  11. ALBUTEROL SULFATE [Concomitant]
     Indication: ASTHMA
     Dosage: 2.5 MG/3ML
     Route: 065
     Dates: start: 20080108
  12. SINGULAIR [Concomitant]
     Indication: ASTHMA
     Route: 048
  13. OMEPRAZOLE [Concomitant]
     Indication: GASTROOESOPHAGEAL REFLUX DISEASE
     Route: 048
  14. VITAMIN D3 [Concomitant]
     Indication: HYPOVITAMINOSIS
     Route: 048
  15. LEVOTHYROXINE [Concomitant]
     Indication: HYPOTHYROIDISM
     Route: 048
     Dates: start: 201002

REACTIONS (4)
  - Anaphylactic reaction [Recovered/Resolved]
  - Thyroid mass [Unknown]
  - Diarrhoea [Recovering/Resolving]
  - Nausea [Recovering/Resolving]
